FAERS Safety Report 4522357-3 (Version None)
Quarter: 2004Q4

REPORT INFORMATION
  Report Type: 
  Country: None (occurrence: None)
  Receive Date: 20041209
  Receipt Date: 20040929
  Transmission Date: 20050328
  Serious: Yes (Life-Threatening, Hospitalization)
  Sender: FDA-Public Use
  Company Number: BE-GLAXOSMITHKLINE-B0346890A

PATIENT
  Age: 41 Year
  Sex: Female
  Weight: 90 kg

DRUGS (9)
  1. SEROXAT [Suspect]
     Indication: DEPRESSION
     Route: 048
     Dates: start: 20020711
  2. SULFASALAZINE [Concomitant]
     Indication: CROHN'S DISEASE
  3. NEXIUM [Concomitant]
  4. RIVOTRIL [Concomitant]
  5. EDRONAX [Concomitant]
     Dosage: 2MG PER DAY
  6. SOLICAM [Concomitant]
  7. SULFASALAZINE [Concomitant]
  8. FORLAX [Concomitant]
  9. CERAZETTE [Concomitant]

REACTIONS (7)
  - ALANINE AMINOTRANSFERASE INCREASED [None]
  - ASPARTATE AMINOTRANSFERASE INCREASED [None]
  - BLOOD ALKALINE PHOSPHATASE INCREASED [None]
  - CHOLESTASIS [None]
  - GAMMA-GLUTAMYLTRANSFERASE INCREASED [None]
  - HEPATIC FIBROSIS [None]
  - HEPATIC STEATOSIS [None]
